FAERS Safety Report 7494607-5 (Version None)
Quarter: 2011Q2

REPORT INFORMATION
  Report Type: 
  Country: None (occurrence: None)
  Receive Date: 20110520
  Receipt Date: 20110513
  Transmission Date: 20111010
  Serious: Yes (Other)
  Sender: FDA-Public Use
  Company Number: DE-CEPHALON-2011002157

PATIENT
  Sex: Female
  Weight: 45 kg

DRUGS (6)
  1. GABITRIL [Suspect]
     Indication: CONVULSION
     Route: 048
     Dates: start: 20100401, end: 20110201
  2. FRISIUM [Concomitant]
  3. GABITRIL [Suspect]
     Route: 048
     Dates: start: 20110201, end: 20110328
  4. KEPPRA [Concomitant]
  5. GABITRIL [Suspect]
     Route: 048
     Dates: start: 20110328
  6. INOVELON [Concomitant]

REACTIONS (7)
  - COORDINATION ABNORMAL [None]
  - ANXIETY DISORDER [None]
  - MUSCULAR WEAKNESS [None]
  - PARALYSIS [None]
  - SLEEP DISORDER [None]
  - CONVULSION [None]
  - ORAL DISORDER [None]
